FAERS Safety Report 26177886 (Version 2)
Quarter: 2025Q4

REPORT INFORMATION
  Report Type: Spontaneous
  Country: EU (occurrence: EU)
  Receive Date: 20251219
  Receipt Date: 20251222
  Transmission Date: 20260118
  Serious: Yes (Other)
  Sender: BAUSCH AND LOMB
  Company Number: EU-BAUSCH-BH-2025-022328

PATIENT
  Age: 49 Year
  Sex: Female

DRUGS (4)
  1. DEXAMETHASONE [Interacting]
     Active Substance: DEXAMETHASONE
     Indication: Brain oedema
     Route: 042
     Dates: start: 2023
  2. TRASTUZUMAB DERUXTECAN [Interacting]
     Active Substance: TRASTUZUMAB DERUXTECAN
     Indication: HER2 positive breast cancer
     Dosage: FIRST CYCLE. DUE TO GRADE 3 (G3) ASTHENIA, G2 ANOREXIA AND G3 ORAL MUCOSITIS
     Route: 065
     Dates: start: 20230304
  3. TRASTUZUMAB DERUXTECAN [Interacting]
     Active Substance: TRASTUZUMAB DERUXTECAN
     Dosage: DOSE REDUCED
     Route: 065
     Dates: start: 2023
  4. MANNITOL [Concomitant]
     Active Substance: MANNITOL
     Indication: Brain oedema
     Route: 042
     Dates: start: 2023

REACTIONS (2)
  - Drug interaction [Recovering/Resolving]
  - Drug-induced liver injury [Recovering/Resolving]

NARRATIVE: CASE EVENT DATE: 20230101
